FAERS Safety Report 15418861 (Version 4)
Quarter: 2019Q2

REPORT INFORMATION
  Report Type: Spontaneous
  Country: US (occurrence: US)
  Receive Date: 20180924
  Receipt Date: 20190403
  Transmission Date: 20190711
  Serious: No
  Sender: FDA-Public Use
  Company Number: US-SA-2018SA263754

PATIENT
  Age: 48 Year
  Sex: Female

DRUGS (2)
  1. AUBAGIO [Suspect]
     Active Substance: TERIFLUNOMIDE
     Indication: MULTIPLE SCLEROSIS
     Dosage: 7 MG, QD
     Route: 048
     Dates: start: 20180627
  2. PREDNISONE. [Concomitant]
     Active Substance: PREDNISONE
     Indication: SENSORY LEVEL ABNORMAL

REACTIONS (5)
  - Sensory disturbance [Unknown]
  - Hypoaesthesia [Unknown]
  - Therapeutic response decreased [Unknown]
  - Drug intolerance [Unknown]
  - Paraesthesia [Unknown]
